FAERS Safety Report 12237504 (Version 1)
Quarter: 2016Q2

REPORT INFORMATION
  Report Type: Spontaneous
  Country: US (occurrence: US)
  Receive Date: 20160405
  Receipt Date: 20160405
  Transmission Date: 20160815
  Serious: No
  Sender: FDA-Public Use
  Company Number: US-BAYER-2016-049357

PATIENT
  Age: 82 Year
  Sex: Male

DRUGS (1)
  1. STAXYN [Suspect]
     Active Substance: VARDENAFIL HYDROCHLORIDE TRIHYDRATE
     Indication: ERECTILE DYSFUNCTION
     Dosage: 10 MG, PRN
     Route: 048
     Dates: start: 201510, end: 201510

REACTIONS (1)
  - Drug ineffective [Recovered/Resolved]
